FAERS Safety Report 7940919-8 (Version None)
Quarter: 2011Q4

REPORT INFORMATION
  Report Type: 
  Country: None (occurrence: None)
  Receive Date: 20111128
  Receipt Date: 20111118
  Transmission Date: 20120403
  Serious: Yes (Hospitalization, Other)
  Sender: FDA-Public Use
  Company Number: CA-JNJFOC-20110811392

PATIENT
  Sex: Female
  Weight: 75 kg

DRUGS (13)
  1. REMICADE [Suspect]
     Route: 042
     Dates: start: 20110728
  2. PREDNISONE TAB [Concomitant]
     Route: 048
  3. PANTOPRAZOLE [Concomitant]
     Route: 065
  4. POTASSIUM CHLORIDE [Concomitant]
     Route: 065
  5. ALL OTHER THERAPEUTIC PRODUCTS [Concomitant]
     Route: 065
  6. REMICADE [Suspect]
     Indication: RHEUMATOID ARTHRITIS
     Dosage: 22ND DOSE
     Route: 042
     Dates: start: 20080714
  7. REMICADE [Suspect]
     Route: 042
     Dates: start: 20111101
  8. AVALIDE [Concomitant]
     Route: 065
  9. SYNTHROID [Concomitant]
     Route: 065
  10. ADALAT [Concomitant]
     Route: 065
  11. ASPIRIN [Concomitant]
     Route: 065
  12. GRAVOL TAB [Concomitant]
     Route: 065
  13. HYDROMORPHONE HCL [Concomitant]
     Route: 065

REACTIONS (3)
  - PAIN [None]
  - KNEE ARTHROPLASTY [None]
  - MUSCLE SPASMS [None]
